FAERS Safety Report 4738426-9 (Version None)
Quarter: 2005Q3

REPORT INFORMATION
  Report Type: 
  Country: None (occurrence: None)
  Receive Date: 20050728
  Receipt Date: 20050418
  Transmission Date: 20060218
  Serious: No
  Sender: FDA-Public Use
  Company Number: 200513301US

PATIENT
  Age: 57 Year
  Sex: Female

DRUGS (4)
  1. TELITHROMYCIN (KETEK) TABLETS [Suspect]
     Indication: BRONCHITIS
     Dosage: 800 MG QD PO
     Route: 048
  2. TELITHROMYCIN (KETEK) TABLETS [Suspect]
     Indication: PNEUMONIA
     Dosage: 800 MG QD PO
     Route: 048
  3. BENZONATATE (TESSALON) [Concomitant]
  4. THYROID MEDICATION NOS [Concomitant]

REACTIONS (1)
  - DRUG INEFFECTIVE [None]
